FAERS Safety Report 5347204-1 (Version None)
Quarter: 2007Q2

REPORT INFORMATION
  Report Type: 
  Country: None (occurrence: None)
  Receive Date: 20070509
  Receipt Date: 20060406
  Transmission Date: 20071010
  Serious: Yes (Other)
  Sender: FDA-Public Use
  Company Number: PHEH2006US04575

PATIENT
  Age: 49 Year
  Sex: Female

DRUGS (2)
  1. TEGRETOL [Suspect]
     Dosage: 200 MG AM + 400 MG PM, ORAL
     Route: 048
     Dates: start: 20010101, end: 20060405
  2. CONTRAST MEDIA (NO INGREDIENTS/SUBSTANCES) [Suspect]
     Indication: COMPUTERISED TOMOGRAM
     Dosage: ONCE/SINGLE, INTRAVENOUS
     Route: 042
     Dates: start: 20060101, end: 20060101

REACTIONS (5)
  - ALLERGY TO CHEMICALS [None]
  - ANAPHYLACTIC REACTION [None]
  - BURNING SENSATION [None]
  - THROAT IRRITATION [None]
  - URTICARIA [None]
